FAERS Safety Report 6144481-4 (Version None)
Quarter: 2009Q2

REPORT INFORMATION
  Report Type: 
  Country: None (occurrence: None)
  Receive Date: 20090406
  Receipt Date: 20090401
  Transmission Date: 20091009
  Serious: Yes (Other)
  Sender: FDA-Public Use
  Company Number: BR-PFIZER INC-2009188286

PATIENT

DRUGS (1)
  1. XALATAN [Suspect]
     Indication: DEVELOPMENTAL GLAUCOMA
     Dosage: 3 UG, 1X/DAY
     Route: 047
     Dates: start: 19980101

REACTIONS (1)
  - EYE OPERATION [None]
